FAERS Safety Report 8617335-9 (Version None)
Quarter: 2012Q3

REPORT INFORMATION
  Report Type: 
  Country: None (occurrence: None)
  Receive Date: 20120823
  Receipt Date: 20120730
  Transmission Date: 20120928
  Serious: No
  Sender: FDA-Public Use
  Company Number: US-009507513-1208USA000231

PATIENT

DRUGS (1)
  1. ASMANEX TWISTHALER [Suspect]
     Indication: ASTHMA
     Dosage: 220 MICROGRAM, 30 COUNT, 1 PUF QD
     Route: 048
     Dates: start: 20120701

REACTIONS (2)
  - COUGH [None]
  - DRUG DOSE OMISSION [None]
